FAERS Safety Report 23810550 (Version 1)
Quarter: 2024Q2

REPORT INFORMATION
  Report Type: Spontaneous
  Country: US (occurrence: US)
  Receive Date: 20240502
  Receipt Date: 20240502
  Transmission Date: 20240715
  Serious: No
  Sender: FDA-Public Use
  Company Number: US-AMGEN-USASP2024084854

PATIENT
  Age: 80 Year
  Sex: Female

DRUGS (5)
  1. PROLIA [Suspect]
     Active Substance: DENOSUMAB
     Indication: Osteoporosis
     Dosage: 60 MILLIGRAM, Q6MO
     Route: 058
  2. AMOXICILLIN [Concomitant]
     Active Substance: AMOXICILLIN
     Indication: Premedication
  3. MK 7 [Concomitant]
     Indication: Product used for unknown indication
     Dosage: UNK
     Route: 065
  4. LOSARTAN [Concomitant]
     Active Substance: LOSARTAN
     Indication: Blood pressure abnormal
     Dosage: UNK
     Route: 065
  5. LEVOTHYROXINE [Concomitant]
     Active Substance: LEVOTHYROXINE\LEVOTHYROXINE SODIUM
     Indication: Hypothyroidism
     Dosage: UNK
     Route: 065

REACTIONS (4)
  - Periodontal disease [Unknown]
  - Endodontic procedure [Unknown]
  - Tooth extraction [Unknown]
  - Tooth disorder [Unknown]

NARRATIVE: CASE EVENT DATE: 20240221
